FAERS Safety Report 10171023 (Version 2)
Quarter: 2014Q2

REPORT INFORMATION
  Report Type: Spontaneous
  Country: ES (occurrence: ES)
  Receive Date: 20140514
  Receipt Date: 20140603
  Transmission Date: 20141212
  Serious: Yes (Other)
  Sender: FDA-Public Use
  Company Number: ES-ASTELLAS-2014EU005179

PATIENT
  Sex: Female

DRUGS (1)
  1. PROGRAF [Suspect]
     Indication: RENAL TRANSPLANT
     Route: 065
     Dates: start: 20130129

REACTIONS (2)
  - Sympathomimetic effect [Recovered/Resolved]
  - Nephropathy toxic [Recovered/Resolved]
